FAERS Safety Report 14944205 (Version 1)
Quarter: 2018Q2

REPORT INFORMATION
  Report Type: Spontaneous
  Country: DE (occurrence: DE)
  Receive Date: 20180528
  Receipt Date: 20180528
  Transmission Date: 20180711
  Serious: Yes (Death, Other)
  Sender: FDA-Public Use
  Company Number: PHHY2014DE185077

PATIENT

DRUGS (6)
  1. EFAVIRENZ. [Concomitant]
     Active Substance: EFAVIRENZ
     Indication: PRODUCT USED FOR UNKNOWN INDICATION
     Route: 065
  2. DACLATASVIR. [Suspect]
     Active Substance: DACLATASVIR
     Indication: CHRONIC HEPATITIS C
     Route: 048
  3. SOFOSBUVIR [Suspect]
     Active Substance: SOFOSBUVIR
     Indication: CHRONIC HEPATITIS C
     Dosage: UNK
     Route: 048
  4. NEVIRAPINE. [Concomitant]
     Active Substance: NEVIRAPINE
     Indication: PRODUCT USED FOR UNKNOWN INDICATION
     Route: 065
  5. RIBAVIRIN. [Suspect]
     Active Substance: RIBAVIRIN
     Indication: CHRONIC HEPATITIS C
     Dosage: UNK
     Route: 048
  6. RITONAVIR. [Concomitant]
     Active Substance: RITONAVIR
     Indication: PRODUCT USED FOR UNKNOWN INDICATION
     Route: 065

REACTIONS (47)
  - Headache [Fatal]
  - Acute kidney injury [Fatal]
  - Infection [Fatal]
  - Somnolence [Fatal]
  - Clostridium difficile colitis [Fatal]
  - Neutropenia [Fatal]
  - Drug withdrawal syndrome [Fatal]
  - Fatigue [Fatal]
  - Peritonitis bacterial [Fatal]
  - Abdominal pain [Fatal]
  - Dermatitis allergic [Fatal]
  - Hepatic encephalopathy [Fatal]
  - Circulatory collapse [Fatal]
  - Portal vein thrombosis [Fatal]
  - Myocardial infarction [Fatal]
  - Hepatobiliary disease [Fatal]
  - Anal cancer [Fatal]
  - Hepatocellular carcinoma [Fatal]
  - Haemorrhoidal haemorrhage [Fatal]
  - Arthralgia [Fatal]
  - Sleep disorder [Fatal]
  - Blood creatinine increased [Fatal]
  - Hyponatraemia [Fatal]
  - Hepatic failure [Fatal]
  - Liver disorder [Fatal]
  - Fluid overload [Fatal]
  - Hypersensitivity vasculitis [Fatal]
  - Pancreatitis acute [Fatal]
  - Mental disorder [Fatal]
  - Lactic acidosis [Fatal]
  - Calculus urinary [Fatal]
  - Soft tissue infection [Fatal]
  - Vertigo [Fatal]
  - Gastrointestinal disorder [Fatal]
  - Dehydration [Fatal]
  - Erysipelas [Fatal]
  - Neoplasm [Fatal]
  - Diarrhoea [Fatal]
  - Lymphoedema [Fatal]
  - Pancytopenia [Fatal]
  - Streptococcal sepsis [Fatal]
  - Anaemia [Fatal]
  - Hypertension [Fatal]
  - Nausea [Fatal]
  - Dyspnoea [Fatal]
  - Gastrointestinal infection [Fatal]
  - General physical health deterioration [Fatal]
